FAERS Safety Report 17769387 (Version 1)
Quarter: 2020Q2

REPORT INFORMATION
  Report Type: Spontaneous
  Country: US (occurrence: US)
  Receive Date: 20200512
  Receipt Date: 20200512
  Transmission Date: 20200714
  Serious: Yes (Death, Hospitalization, Other)
  Sender: FDA-Public Use
  Company Number: US-VISTAPHARM, INC.-VER202005-000881

PATIENT
  Age: 61 Year
  Sex: Female

DRUGS (7)
  1. MYCOPHENOLATE MOFETIL, USP [Suspect]
     Active Substance: MYCOPHENOLATE MOFETIL
     Indication: IMMUNOSUPPRESSION
     Dosage: UNKNOWN
  2. PREDNISONE. [Suspect]
     Active Substance: PREDNISONE
     Indication: IMMUNOSUPPRESSION
     Dosage: UNKNOWN
  3. VANCOMYCIN [Concomitant]
     Active Substance: VANCOMYCIN
     Indication: ABDOMINAL WALL ABSCESS
     Dosage: UNKNOWN
     Route: 042
  4. TACROLIMUS. [Suspect]
     Active Substance: TACROLIMUS
     Indication: IMMUNOSUPPRESSION
     Dosage: UNKNOWN
  5. ACYCLOVIR. [Concomitant]
     Active Substance: ACYCLOVIR
     Indication: ANTIBIOTIC PROPHYLAXIS
     Dosage: 400 MG BID
  6. PIPERACILLIN AND TAZOBACTAM [Concomitant]
     Active Substance: PIPERACILLIN SODIUM\TAZOBACTAM SODIUM
     Indication: ABDOMINAL WALL ABSCESS
     Dosage: UNKNOWN
  7. TRIMETHOPRIM-SULFAMETHOXAZOLE [Concomitant]
     Active Substance: SULFAMETHOXAZOLE\TRIMETHOPRIM
     Indication: PROPHYLAXIS
     Dosage: 1 DS TABLET THREE TIMES WEEKLY

REACTIONS (6)
  - Clostridium difficile colitis [Fatal]
  - Respiratory failure [Unknown]
  - Encephalitis cytomegalovirus [Unknown]
  - Pneumonia klebsiella [Fatal]
  - Diarrhoea [Unknown]
  - Enterococcal infection [Fatal]
